FAERS Safety Report 8444791-1 (Version None)
Quarter: 2012Q2

REPORT INFORMATION
  Report Type: 
  Country: None (occurrence: None)
  Receive Date: 20120323
  Receipt Date: 20110817
  Transmission Date: 20120825
  Serious: Yes (Other)
  Sender: FDA-Public Use
  Company Number: 163-21880-11082168

PATIENT
  Age: 47 Year
  Sex: Male
  Weight: 90.7194 kg

DRUGS (10)
  1. VITAMIN B6 (PYRIDOXINE HYDROCHLORIDE)(UNKNOWN) [Concomitant]
  2. ZOCOR (SIMVASTATIN)(UNKNOWN) [Concomitant]
  3. FLOMAX (TAMSULOSIN)(UNKNOWN) [Concomitant]
  4. VITAMIN B3 (NICOTINAMIDE)(UNKNOWN) [Concomitant]
  5. LENALIDOMIDE [Suspect]
     Indication: MULTIPLE MYELOMA
     Dosage: 25 MG, 21/7, PO
     Route: 048
     Dates: start: 20110726
  6. PROZAC [Concomitant]
  7. VITAMIN B12 (CYANOCOBALAMIN)(UNKNOWN) [Concomitant]
  8. BENADRYL (DIPHENHYDRAMINE HYDROCHLORIDE)(UNKNOWN) [Concomitant]
  9. GABAPENTIN [Concomitant]
  10. NEXIUM [Concomitant]

REACTIONS (1)
  - RASH [None]
